FAERS Safety Report 4808628-1 (Version None)
Quarter: 2005Q4

REPORT INFORMATION
  Report Type: 
  Country: None (occurrence: None)
  Receive Date: 20051021
  Receipt Date: 20051021
  Transmission Date: 20060501
  Serious: Yes (Other)
  Sender: FDA-Public Use
  Company Number: None

PATIENT
  Age: 52 Year
  Sex: Female
  Weight: 49.8957 kg

DRUGS (3)
  1. LEVOFLOXACIN [Suspect]
     Indication: LOCALISED INFECTION
     Dosage: 500 MG 1X PER DAY PO
     Route: 048
     Dates: start: 20051012, end: 20051018
  2. CENESTIN HORMONE REPLACEMENT THERAPY [Concomitant]
  3. ZANTAC [Concomitant]

REACTIONS (6)
  - ARTHRITIS [None]
  - BURNING SENSATION [None]
  - HYPOAESTHESIA [None]
  - MUSCULOSKELETAL STIFFNESS [None]
  - PAIN [None]
  - PAIN IN EXTREMITY [None]
